FAERS Safety Report 7211080-2 (Version None)
Quarter: 2011Q1

REPORT INFORMATION
  Report Type: 
  Country: None (occurrence: None)
  Receive Date: 20110105
  Receipt Date: 20101229
  Transmission Date: 20110831
  Serious: Yes (Life-Threatening, Hospitalization)
  Sender: FDA-Public Use
  Company Number: PHHO2010DE13486

PATIENT
  Sex: Male
  Weight: 80 kg

DRUGS (2)
  1. STI571/CGP57148B [Suspect]
     Indication: ACUTE LYMPHOCYTIC LEUKAEMIA
     Dosage: 400 MG, QD
     Route: 048
     Dates: start: 20100604, end: 20100830
  2. ENOXAPARIN SODIUM [Suspect]
     Indication: THROMBOSIS
     Dosage: 40 MG, QD
     Route: 058
     Dates: start: 20100607, end: 20100902

REACTIONS (9)
  - HAEMATOCHEZIA [None]
  - INTESTINAL HAEMORRHAGE [None]
  - RECTAL HAEMORRHAGE [None]
  - STAPHYLOCOCCAL INFECTION [None]
  - ASTHENIA [None]
  - FATIGUE [None]
  - ANAEMIA [None]
  - PALLOR [None]
  - PYREXIA [None]
